FAERS Safety Report 5730631-8 (Version None)
Quarter: 2008Q2

REPORT INFORMATION
  Report Type: 
  Country: None (occurrence: None)
  Receive Date: 20080505
  Receipt Date: 20080505
  Transmission Date: 20081010
  Serious: Yes (Life-Threatening, Hospitalization, Other)
  Sender: FDA-Public Use
  Company Number: None

PATIENT
  Age: 83 Year
  Sex: Male
  Weight: 54.4316 kg

DRUGS (2)
  1. ADVAIR DISKUS 250/50 [Suspect]
     Indication: CHRONIC OBSTRUCTIVE PULMONARY DISEASE
     Dosage: 1 TWICE DAILY PO
     Route: 048
     Dates: start: 20080409, end: 20080427
  2. ADVAIR DISKUS 250/50 [Suspect]
     Indication: DYSPNOEA
     Dosage: 1 TWICE DAILY PO
     Route: 048
     Dates: start: 20080409, end: 20080427

REACTIONS (2)
  - LUNG DISORDER [None]
  - RESPIRATORY DISORDER [None]
